FAERS Safety Report 10937118 (Version 2)
Quarter: 2015Q2

REPORT INFORMATION
  Report Type: Spontaneous
  Country: US (occurrence: US)
  Receive Date: 20150321
  Receipt Date: 20150525
  Transmission Date: 20150821
  Serious: Yes (Other)
  Sender: FDA-Public Use
  Company Number: US-JNJFOC-20140801488

PATIENT

DRUGS (3)
  1. TOPAMAX [Suspect]
     Active Substance: TOPIRAMATE
     Indication: SEIZURE
     Route: 048
  2. KEPPRA [Suspect]
     Active Substance: LEVETIRACETAM
     Indication: SEIZURE
     Route: 065
  3. VIMPAT [Suspect]
     Active Substance: LACOSAMIDE
     Indication: SEIZURE
     Dosage: 50 MG IN THE MORNING AND 100 MG IN THE EVENING.
     Route: 065

REACTIONS (7)
  - Nausea [Unknown]
  - Urticaria [Unknown]
  - Decreased appetite [Unknown]
  - Depression [Unknown]
  - Motion sickness [Unknown]
  - Seizure [Unknown]
  - Suicidal ideation [Unknown]
